FAERS Safety Report 7730008-X (Version None)
Quarter: 2011Q3

REPORT INFORMATION
  Report Type: 
  Country: None (occurrence: None)
  Receive Date: 20110906
  Receipt Date: 20110825
  Transmission Date: 20111222
  Serious: Yes (Other)
  Sender: FDA-Public Use
  Company Number: PHHY2011DE75546

PATIENT
  Sex: Female
  Weight: 69 kg

DRUGS (4)
  1. SUMATRIPTAN SUCCINATE [Concomitant]
     Indication: MIGRAINE
     Dosage: 50 MG, PRN
     Route: 048
     Dates: start: 20110818
  2. METOCLOPRAMIDE [Concomitant]
     Indication: MIGRAINE
     Dosage: 10 MG, PRN
     Route: 048
     Dates: start: 20110818
  3. ACETAMINOPHEN [Concomitant]
     Indication: MIGRAINE
     Dosage: 1000 MG, PRN
     Route: 048
  4. GILENYA [Suspect]
     Indication: MULTIPLE SCLEROSIS
     Dosage: 0.5 MG, DAILY
     Route: 048
     Dates: start: 20101013, end: 20110816

REACTIONS (3)
  - BONE NEOPLASM MALIGNANT [None]
  - BONE PAIN [None]
  - ENCHONDROMA [None]
